FAERS Safety Report 5799684-5 (Version None)
Quarter: 2008Q3

REPORT INFORMATION
  Report Type: 
  Country: None (occurrence: None)
  Receive Date: 20080703
  Receipt Date: 20080702
  Transmission Date: 20090109
  Serious: Yes (Other)
  Sender: FDA-Public Use
  Company Number: FR-RB-001999-08

PATIENT
  Age: 33 Year
  Sex: Female

DRUGS (3)
  1. SUBUTEX [Suspect]
     Route: 065
  2. IMPLANON [Suspect]
     Indication: DRUG USE FOR UNKNOWN INDICATION
     Dosage: DOSING INFORMATION UNKNOWN
     Dates: start: 20030101, end: 20060101
  3. IMPLANON [Suspect]
     Dosage: DOSING INFORMATION UNKNOWN
     Dates: start: 20060405, end: 20080409

REACTIONS (2)
  - ABORTION INDUCED [None]
  - DRUG EXPOSURE DURING PREGNANCY [None]
